FAERS Safety Report 10243170 (Version 1)
Quarter: 2014Q2

REPORT INFORMATION
  Report Type: Spontaneous
  Country: US (occurrence: None)
  Receive Date: 20140616
  Receipt Date: 20140616
  Transmission Date: 20141212
  Serious: Yes (Life-Threatening, Hospitalization, Disabling)
  Sender: FDA-Public Use
  Company Number: None

PATIENT
  Age: 19 Year
  Sex: Female
  Weight: 64.86 kg

DRUGS (3)
  1. METHYLCOBALAMIN [Suspect]
     Indication: ILL-DEFINED DISORDER
  2. METHYLCOBALAMIN [Suspect]
     Indication: DETOXIFICATION
  3. SUN CHLORELLA [Suspect]

REACTIONS (3)
  - Memory impairment [None]
  - Condition aggravated [None]
  - Anger [None]
